FAERS Safety Report 15225744 (Version 1)
Quarter: 2018Q3

REPORT INFORMATION
  Report Type: Spontaneous
  Country: FR (occurrence: FR)
  Receive Date: 20180801
  Receipt Date: 20180801
  Transmission Date: 20181010
  Serious: Yes (Hospitalization)
  Sender: FDA-Public Use
  Company Number: FR-TEVA-2018-FR-933234

PATIENT
  Age: 65 Year
  Sex: Male
  Weight: 105 kg

DRUGS (3)
  1. ATORVASTATINE [Suspect]
     Active Substance: ATORVASTATIN
     Route: 048
  2. FLUOXETINE (CHLORHYDRATE DE) [Suspect]
     Active Substance: FLUOXETINE HYDROCHLORIDE
     Route: 048
  3. METFORMINE [Suspect]
     Active Substance: METFORMIN HYDROCHLORIDE
     Indication: DIABETES MELLITUS
     Route: 048
     Dates: end: 20180604

REACTIONS (3)
  - Dyspnoea [Not Recovered/Not Resolved]
  - Interstitial lung disease [Not Recovered/Not Resolved]
  - Cough [Not Recovered/Not Resolved]

NARRATIVE: CASE EVENT DATE: 201803
